FAERS Safety Report 11317401 (Version 1)
Quarter: 2015Q3

REPORT INFORMATION
  Report Type: Report from Study
  Country: JP (occurrence: JP)
  Receive Date: 20150728
  Receipt Date: 20150728
  Transmission Date: 20151125
  Serious: Yes (Hospitalization, Other)
  Sender: FDA-Public Use
  Company Number: JP-SHIRE-JP201508486

PATIENT
  Age: 82 Year
  Sex: Male

DRUGS (20)
  1. 405 (LANTHANUM CARBONATE) [Suspect]
     Active Substance: LANTHANUM CARBONATE
     Dosage: 1500 MG, UNKNOWN
     Route: 048
     Dates: start: 20110113, end: 20111019
  2. OXAROL [Concomitant]
     Active Substance: MAXACALCITOL
     Dosage: 5 ?G, OTHER (2 TIMES PER WEEK)
     Route: 042
     Dates: start: 20090909, end: 20110524
  3. BAYASPIRIN [Concomitant]
     Active Substance: ASPIRIN
     Indication: PRODUCT USED FOR UNKNOWN INDICATION
     Dosage: 100 MG, UNKNOWN
     Route: 048
  4. RENAGEL                            /01459903/ [Concomitant]
     Dosage: 1500 MG, UNKNOWN
     Route: 048
  5. OXAROL [Concomitant]
     Active Substance: MAXACALCITOL
     Dosage: 10 ?G, OTHER (2 TIMES PER WEEK)
     Route: 042
     Dates: start: 20110618, end: 20110906
  6. PURSENNID                          /00142207/ [Concomitant]
     Active Substance: SENNOSIDES A AND B
     Indication: PRODUCT USED FOR UNKNOWN INDICATION
     Dosage: 24 MG, UNKNOWN
     Route: 048
  7. REGPARA [Concomitant]
     Active Substance: CINACALCET HYDROCHLORIDE
     Dosage: 25 MG, UNKNOWN
     Route: 048
     Dates: start: 20140415, end: 20140526
  8. 405 (LANTHANUM CARBONATE) [Suspect]
     Active Substance: LANTHANUM CARBONATE
     Indication: HYPERPHOSPHATAEMIA
     Dosage: 2250 MG, UNKNOWN (PER DAY)
     Route: 048
     Dates: start: 20120614, end: 20140107
  9. 405 (LANTHANUM CARBONATE) [Suspect]
     Active Substance: LANTHANUM CARBONATE
     Dosage: 2250 MG, UNKNOWN
     Route: 048
     Dates: start: 20111020, end: 20120613
  10. OXAROL [Concomitant]
     Active Substance: MAXACALCITOL
     Indication: PRODUCT USED FOR UNKNOWN INDICATION
     Dosage: 2.5 ?G, OTHER (3 TIMES PER WEEK)
     Route: 042
     Dates: start: 20120412
  11. RENAGEL                            /01459903/ [Concomitant]
     Indication: HYPERPHOSPHATAEMIA
     Dosage: 2250 MG, UNKNOWN
     Route: 048
     Dates: start: 20140124
  12. OXAROL [Concomitant]
     Active Substance: MAXACALCITOL
     Dosage: 5 ?G, OTHER (3 TIMES PER WEEK)
     Route: 042
     Dates: start: 20110526, end: 20110614
  13. REGPARA [Concomitant]
     Active Substance: CINACALCET HYDROCHLORIDE
     Dosage: 25 MG, UNKNOWN
     Route: 048
     Dates: start: 20140527
  14. 405 (LANTHANUM CARBONATE) [Suspect]
     Active Substance: LANTHANUM CARBONATE
     Dosage: 750 MG, UNKNOWN (PER DAY)
     Route: 048
     Dates: start: 20140628, end: 20141004
  15. OXAROL [Concomitant]
     Active Substance: MAXACALCITOL
     Dosage: 5 ?G, OTHER (3 TIMES PER WEEK)
     Route: 042
     Dates: start: 20110908, end: 20120124
  16. EPOGIN [Concomitant]
     Indication: PRODUCT USED FOR UNKNOWN INDICATION
     Dosage: 750 IU, UNKNOWN
     Route: 042
  17. 405 (LANTHANUM CARBONATE) [Suspect]
     Active Substance: LANTHANUM CARBONATE
     Dosage: 1500 MG, UNKNOWN (PER DAY)
     Route: 048
     Dates: start: 20141005, end: 20150107
  18. 405 (LANTHANUM CARBONATE) [Suspect]
     Active Substance: LANTHANUM CARBONATE
     Indication: HYPERPHOSPHATAEMIA
     Dosage: 750 MG, UNKNOWN
     Route: 048
     Dates: start: 20100407, end: 20110112
  19. RENAGEL                            /01459903/ [Concomitant]
     Dosage: 750 MG, UNKNOWN
     Route: 048
     Dates: start: 20111122, end: 20120123
  20. REGPARA [Concomitant]
     Active Substance: CINACALCET HYDROCHLORIDE
     Indication: PRODUCT USED FOR UNKNOWN INDICATION
     Dosage: 25 MG, UNKNOWN
     Route: 048
     Dates: start: 20120314, end: 20140107

REACTIONS (4)
  - Aortic valve incompetence [Unknown]
  - Pleural effusion [Recovered/Resolved]
  - Mitral valve incompetence [Unknown]
  - Cardiac failure [Unknown]

NARRATIVE: CASE EVENT DATE: 20150107
